FAERS Safety Report 9114875 (Version 1)
Quarter: 2013Q1

REPORT INFORMATION
  Report Type: Spontaneous
  Country: US (occurrence: None)
  Receive Date: 20130220
  Receipt Date: 20130220
  Transmission Date: 20140127
  Serious: Yes (Other)
  Sender: FDA-Public Use
  Company Number: None

PATIENT
  Age: 65 Year
  Sex: Male
  Weight: 95.26 kg

DRUGS (1)
  1. CLINDAMYCIN [Suspect]
     Indication: DENTAL CARIES
     Dosage: 21 CAPSULES  300 MG  2 THEN 1 EVERY 6 H  PO?01/28/2013  --  02/04/2013?
     Route: 048
     Dates: start: 20130128, end: 20130204

REACTIONS (4)
  - Dyspepsia [None]
  - Dysphagia [None]
  - Malaise [None]
  - Discomfort [None]
